FAERS Safety Report 5039865-1 (Version None)
Quarter: 2006Q2

REPORT INFORMATION
  Report Type: 
  Country: None (occurrence: None)
  Receive Date: 20060601
  Receipt Date: 20060110
  Transmission Date: 20061013
  Serious: No
  Sender: FDA-Public Use
  Company Number: 2006PV006864

PATIENT
  Age: 55 Year
  Sex: Female
  Weight: 85.7298 kg

DRUGS (4)
  1. BYETTA [Suspect]
     Indication: DIABETES MELLITUS NON-INSULIN-DEPENDENT
     Dosage: 5 MCG BID SC
     Route: 058
     Dates: start: 20060106
  2. ACTOS [Concomitant]
  3. LANTUS [Concomitant]
  4. HUMALOG [Concomitant]

REACTIONS (11)
  - ASTHENIA [None]
  - BACK PAIN [None]
  - BLOOD GLUCOSE INCREASED [None]
  - DECREASED APPETITE [None]
  - DRY MOUTH [None]
  - DYSPEPSIA [None]
  - DYSPNOEA [None]
  - FALL [None]
  - HYPERCHLORHYDRIA [None]
  - HYPERHIDROSIS [None]
  - NAUSEA [None]
